FAERS Safety Report 9995766 (Version 1)
Quarter: 2014Q1

REPORT INFORMATION
  Report Type: Spontaneous
  Country: GB (occurrence: None)
  Receive Date: 20140307
  Receipt Date: 20140307
  Transmission Date: 20141002
  Serious: Yes (Other)
  Sender: FDA-Public Use
  Company Number: 2014AP001658

PATIENT
  Age: 77 Year
  Sex: Female

DRUGS (7)
  1. ALENDRONIC ACID [Suspect]
     Indication: JOINT INJURY
     Route: 048
     Dates: start: 2006, end: 20140219
  2. ALENDRONIC ACID [Suspect]
     Indication: PROPHYLAXIS
     Route: 048
     Dates: start: 2006, end: 20140219
  3. ADCAL-D3 (LEKOVIT CA) [Concomitant]
  4. AMITRIPTYLINE (AMITRIPTYLINE) [Concomitant]
  5. AMLODIPINE (AMLODIPINE) [Concomitant]
  6. NASACORT (TRIAMCINOLONE ACETONIDE) [Concomitant]
  7. PARACETAMOL (PARACETAMOL) [Concomitant]

REACTIONS (2)
  - Incorrect drug administration duration [None]
  - Femur fracture [None]
